FAERS Safety Report 9949296 (Version 2)
Quarter: 2014Q1

REPORT INFORMATION
  Report Type: Spontaneous
  Country: US (occurrence: US)
  Receive Date: 20140304
  Receipt Date: 20140304
  Transmission Date: 20141002
  Serious: Yes (Hospitalization)
  Sender: FDA-Public Use
  Company Number: US-BAYER-2014-019681

PATIENT
  Age: 46 Year
  Sex: Male

DRUGS (3)
  1. TESTOSTERONE GEL [Suspect]
     Indication: BLOOD TESTOSTERONE DECREASED
     Dosage: 1 %, UNK
     Route: 065
     Dates: end: 201401
  2. AMOXICILLINE [Suspect]
     Dosage: UNK
     Dates: start: 201312, end: 201312
  3. CIPRO [Suspect]
     Dosage: UNK
     Dates: start: 201312, end: 201312

REACTIONS (1)
  - Bronchopneumonia [Recovered/Resolved]
